FAERS Safety Report 12503643 (Version 1)
Quarter: 2016Q2

REPORT INFORMATION
  Report Type: Spontaneous
  Country: PL (occurrence: PL)
  Receive Date: 20160628
  Receipt Date: 20160628
  Transmission Date: 20160815
  Serious: Yes (Hospitalization)
  Sender: FDA-Public Use
  Company Number: PL-ABBVIE-16K-129-1657821-00

PATIENT
  Age: 63 Year
  Sex: Male

DRUGS (1)
  1. HUMIRA [Suspect]
     Active Substance: ADALIMUMAB
     Indication: RHEUMATOID ARTHRITIS
     Route: 058
     Dates: end: 20160318

REACTIONS (17)
  - Gastrointestinal oedema [Recovering/Resolving]
  - Pancreatitis acute [Recovering/Resolving]
  - Haematocrit decreased [Recovering/Resolving]
  - Red blood cell count decreased [Recovering/Resolving]
  - Gastrointestinal wall abnormal [Recovering/Resolving]
  - Gastrointestinal ulcer [Recovering/Resolving]
  - Platelet count decreased [Recovering/Resolving]
  - Gastritis [Recovering/Resolving]
  - Oesophagitis [Recovering/Resolving]
  - Obstruction gastric [Recovering/Resolving]
  - Rheumatoid arthritis [Unknown]
  - Gastrointestinal injury [Recovering/Resolving]
  - Duodenitis [Recovering/Resolving]
  - Gastrooesophageal reflux disease [Recovering/Resolving]
  - Hepatic steatosis [Unknown]
  - Hepatic cyst [Unknown]
  - Helicobacter test positive [Recovering/Resolving]

NARRATIVE: CASE EVENT DATE: 2016
